FAERS Safety Report 4680253-5 (Version None)
Quarter: 2005Q2

REPORT INFORMATION
  Report Type: 
  Country: None (occurrence: None)
  Receive Date: 20050525
  Receipt Date: 20050211
  Transmission Date: 20051028
  Serious: No
  Sender: FDA-Public Use
  Company Number: 212485

PATIENT
  Sex: Male

DRUGS (1)
  1. RAPTIVA [Suspect]
     Indication: PSORIASIS
     Dosage: 68 MG, SUBCUTANEOUS
     Route: 058
     Dates: start: 20041001

REACTIONS (2)
  - LYMPHOCYTOSIS [None]
  - NEUTROPHIL COUNT INCREASED [None]
